FAERS Safety Report 24286030 (Version 2)
Quarter: 2024Q4

REPORT INFORMATION
  Report Type: Spontaneous
  Country: US (occurrence: US)
  Receive Date: 20240905
  Receipt Date: 20241023
  Transmission Date: 20250115
  Serious: No
  Sender: MYLAN
  Company Number: US-MYLANLABS-2024M1079466

PATIENT
  Sex: Female

DRUGS (1)
  1. TYRVAYA [Suspect]
     Active Substance: VARENICLINE TARTRATE
     Indication: Product used for unknown indication
     Dosage: UNK
     Route: 045

REACTIONS (5)
  - Sneezing [Unknown]
  - Off label use [Unknown]
  - Device difficult to use [Unknown]
  - Product packaging quantity issue [Unknown]
  - Product quality issue [Unknown]
